FAERS Safety Report 8661943 (Version 3)
Quarter: 2012Q4

REPORT INFORMATION
  Report Type: Spontaneous
  Country: US (occurrence: None)
  Receive Date: 20120626
  Receipt Date: 20120919
  Transmission Date: 20130627
  Serious: Yes (Hospitalization)
  Sender: FDA-Public Use
  Company Number: 2012032468

PATIENT
  Age: 49 Year
  Sex: Female
  Weight: 53.52 kg

DRUGS (18)
  1. HIZENTRA [Suspect]
     Indication: IMMUNODEFICIENCY COMMON VARIABLE
     Dosage: (2 gm on 4 sites over 1-2 hours)
     Route: 058
     Dates: start: 20120524, end: 20120524
  2. HIZENTRA [Suspect]
     Indication: IMMUNODEFICIENCY COMMON VARIABLE
     Dosage: (2 g on 4 sites over 1-2 hours)
     Route: 058
     Dates: start: 20120619, end: 20120619
  3. BENADRYL [Suspect]
     Dosage: (EVERY 4-6 HOURS X 24 HOURS)
  4. DIPHENHYDRAMINE HYDROCHLORIDE [Concomitant]
  5. LIDOCAINE/PRILOCAINE (EMLA /00675501/) [Concomitant]
  6. EPIPEN [Concomitant]
  7. DEMEROL [Concomitant]
  8. GEODON [Concomitant]
  9. ROBAXIN [Concomitant]
  10. PRILOSEC [Concomitant]
  11. ALBUTEROL [Concomitant]
  12. PAMELOR [Concomitant]
  13. VITAMIN D [Concomitant]
  14. ATIVAN [Concomitant]
  15. PROAIR HFA (SALBUTAMOL SULFATE) [Concomitant]
  16. ACIDOPHILUS (LACTOBACILLUS ACIDOPHILUS) [Concomitant]
  17. BENTYL [Concomitant]
  18. MUCINEX ER (GUAIFENESIN) [Concomitant]

REACTIONS (7)
  - Pyrexia [None]
  - Infusion site swelling [None]
  - Infusion site erythema [None]
  - Throat irritation [None]
  - Somnolence [None]
  - Infusion site pruritus [None]
  - Pruritus [None]
